FAERS Safety Report 7733503-2 (Version None)
Quarter: 2011Q3

REPORT INFORMATION
  Report Type: 
  Country: None (occurrence: None)
  Receive Date: 20110907
  Receipt Date: 20110907
  Transmission Date: 20111222
  Serious: No
  Sender: FDA-Public Use
  Company Number: None

PATIENT
  Age: 62 Year
  Sex: Female
  Weight: 71.214 kg

DRUGS (1)
  1. ARM + HAMMER TOOTH PASTE (OTC) [Suspect]
     Indication: DENTAL DISORDER PROPHYLAXIS
     Dosage: 0.25 TSP
     Route: 004
     Dates: start: 20110827, end: 20110901

REACTIONS (2)
  - HYPERSENSITIVITY [None]
  - DISCOMFORT [None]
